FAERS Safety Report 20726297 (Version 2)
Quarter: 2022Q2

REPORT INFORMATION
  Report Type: Spontaneous
  Country: US (occurrence: US)
  Receive Date: 20220419
  Receipt Date: 20220422
  Transmission Date: 20220721
  Serious: Yes (Other)
  Sender: FDA-Public Use
  Company Number: US-JNJFOC-20220431533

PATIENT

DRUGS (1)
  1. ZYRTEC [Suspect]
     Active Substance: CETIRIZINE HYDROCHLORIDE
     Indication: Mechanical urticaria
     Dosage: HAVE TO TAKE 2 A DAY
     Route: 065

REACTIONS (9)
  - Drug dependence [Unknown]
  - Product use in unapproved indication [Unknown]
  - Off label use [Unknown]
  - Liver disorder [Unknown]
  - Migraine [Unknown]
  - Vomiting [Unknown]
  - Asthma [Unknown]
  - Withdrawal syndrome [Unknown]
  - Pruritus [Unknown]
